FAERS Safety Report 4690703-6 (Version None)
Quarter: 2005Q2

REPORT INFORMATION
  Report Type: 
  Country: None (occurrence: None)
  Receive Date: 20050613
  Receipt Date: 20050531
  Transmission Date: 20051028
  Serious: Yes (Other)
  Sender: FDA-Public Use
  Company Number: 214927

PATIENT
  Age: 71 Year
  Sex: Female
  Weight: 53.9 kg

DRUGS (8)
  1. RITUXAN [Suspect]
     Indication: NON-HODGKIN'S LYMPHOMA
     Dosage: 550 MG, INTRAVENOUS
     Route: 042
     Dates: start: 20041208, end: 20050112
  2. ONCOVIN [Suspect]
     Indication: NON-HODGKIN'S LYMPHOMA
     Dosage: 1.3 MG, INTRAVENOUS
     Route: 042
     Dates: start: 20041118, end: 20050118
  3. ADRIACIN (DOXOROBUCIN, DOXORUBICIN HYDROCHLORIDE) [Suspect]
     Indication: NON-HODGKIN'S LYMPHOMA
     Dosage: 48 MG, INTRAVENOUS
     Route: 042
     Dates: start: 20041118, end: 20050118
  4. CYCLOPHOSPHAMIDE [Suspect]
     Indication: NON-HODGKIN'S LYMPHOMA
     Dosage: 700 MG, INTRAVENOUS
     Route: 042
     Dates: start: 20041118, end: 20050118
  5. PREDONINE [Suspect]
     Indication: NON-HODGKIN'S LYMPHOMA
     Dosage: 65 MG, ORAL
     Route: 048
     Dates: start: 20041118, end: 20050118
  6. G-CSF (FILGRASTIM) [Suspect]
     Indication: FEBRILE NEUTROPENIA
  7. CEFEPIME HYDROCHLORIDE (CEFEPIME HYDROCHLORIDE) [Concomitant]
  8. FLUCONAZOLE [Concomitant]

REACTIONS (2)
  - AORTIC THROMBOSIS [None]
  - FEBRILE NEUTROPENIA [None]
